FAERS Safety Report 4354234-5 (Version None)
Quarter: 2004Q2

REPORT INFORMATION
  Report Type: 
  Country: None (occurrence: None)
  Receive Date: 20040506
  Receipt Date: 20040422
  Transmission Date: 20050107
  Serious: Yes (Other)
  Sender: FDA-Public Use
  Company Number: DK-GLAXOSMITHKLINE-B0331029A

PATIENT
  Age: 37 Year
  Sex: Male

DRUGS (3)
  1. SEROXAT [Suspect]
     Indication: DEPRESSION
     Dates: start: 20010724
  2. ZOLOFT [Concomitant]
     Indication: DEPRESSION
  3. ANTABUSE [Concomitant]
     Indication: ALCOHOL USE
     Dates: start: 20021001

REACTIONS (7)
  - AMNESIA [None]
  - ANXIETY [None]
  - DISTURBANCE IN ATTENTION [None]
  - DISTURBANCE IN SEXUAL AROUSAL [None]
  - SLEEP DISORDER [None]
  - SUICIDE ATTEMPT [None]
  - TINNITUS [None]
